FAERS Safety Report 16913326 (Version 1)
Quarter: 2019Q4

REPORT INFORMATION
  Report Type: Spontaneous
  Country: US (occurrence: US)
  Receive Date: 20190821
  Receipt Date: 20190821
  Transmission Date: 20200122
  Serious: Yes (Hospitalization)
  Sender: FDA-Public Use
  Company Number: None

PATIENT
  Age: 65 Year
  Sex: Female

DRUGS (2)
  1. REBIF [Suspect]
     Active Substance: INTERFERON BETA-1A
     Indication: MULTIPLE SCLEROSIS
     Dosage: ?          OTHER FREQUENCY:3X PER WEEK ;?
     Route: 058
     Dates: start: 20180223
  2. GABAPENTIN. [Concomitant]
     Active Substance: GABAPENTIN

REACTIONS (2)
  - Breast cancer [None]
  - Mammoplasty [None]

NARRATIVE: CASE EVENT DATE: 20190702
